FAERS Safety Report 23686965 (Version 1)
Quarter: 2024Q1

REPORT INFORMATION
  Report Type: Spontaneous
  Country: US (occurrence: US)
  Receive Date: 20240329
  Receipt Date: 20240329
  Transmission Date: 20240409
  Serious: Yes (Other)
  Sender: FDA-Public Use
  Company Number: US-VIIV HEALTHCARE LIMITED-US2024036452

PATIENT

DRUGS (1)
  1. DOVATO [Suspect]
     Active Substance: DOLUTEGRAVIR SODIUM\LAMIVUDINE
     Indication: HIV infection
     Dosage: 1 DF, QD, 50-300 MG
     Route: 048

REACTIONS (12)
  - Hepatitis B [Unknown]
  - Papule [Unknown]
  - Dyslipidaemia [Unknown]
  - Vitamin D deficiency [Unknown]
  - Rash [Recovered/Resolved]
  - Chills [Recovered/Resolved]
  - Pyrexia [Recovered/Resolved]
  - Lymphadenopathy [Recovered/Resolved]
  - Skin lesion [Unknown]
  - Fatigue [Recovered/Resolved]
  - Hypertension [Unknown]
  - Malaise [Unknown]
